FAERS Safety Report 6303881-X (Version None)
Quarter: 2009Q3

REPORT INFORMATION
  Report Type: 
  Country: None (occurrence: None)
  Receive Date: 20090805
  Receipt Date: 20090723
  Transmission Date: 20100115
  Serious: Yes (Other)
  Sender: FDA-Public Use
  Company Number: ENTC2008-0332

PATIENT
  Age: 79 Year
  Sex: Male

DRUGS (10)
  1. STALEVO 100 [Suspect]
     Dosage: 200MG, FIVE TIMES A DAY, ORAL
     Route: 048
     Dates: start: 20080711, end: 20081013
  2. COMTAN [Suspect]
     Dates: end: 20081001
  3. AVAPRO [Concomitant]
  4. CELEBREX [Concomitant]
  5. CYANOCOBALAMIN [Concomitant]
  6. LEXAPRO [Concomitant]
  7. GLIMEPIRIDE [Concomitant]
  8. LIPITOR [Concomitant]
  9. NAMENDA [Concomitant]
  10. NEXIUM [Concomitant]

REACTIONS (14)
  - ALANINE AMINOTRANSFERASE DECREASED [None]
  - ALANINE AMINOTRANSFERASE INCREASED [None]
  - ASPARTATE AMINOTRANSFERASE INCREASED [None]
  - BILIARY TRACT DISORDER [None]
  - BLOOD ALBUMIN DECREASED [None]
  - BLOOD ALKALINE PHOSPHATASE INCREASED [None]
  - GALLBLADDER DISORDER [None]
  - HAEMOGLOBIN DECREASED [None]
  - HEPATIC CALCIFICATION [None]
  - HEPATOTOXICITY [None]
  - JAUNDICE [None]
  - LIVER INJURY [None]
  - PLATELET COUNT DECREASED [None]
  - PROTHROMBIN TIME PROLONGED [None]
